FAERS Safety Report 17372946 (Version 1)
Quarter: 2020Q1

REPORT INFORMATION
  Report Type: Spontaneous
  Country: US (occurrence: US)
  Receive Date: 20200205
  Receipt Date: 20200205
  Transmission Date: 20200409
  Serious: No
  Sender: FDA-Public Use
  Company Number: US-GALDERMA-US19012278

PATIENT
  Age: 60 Year
  Sex: Female

DRUGS (2)
  1. SOOLANTRA [Suspect]
     Active Substance: IVERMECTIN
     Indication: INFECTION PARASITIC
     Dosage: 1%
     Route: 061
     Dates: start: 20190213
  2. SOOLANTRA [Suspect]
     Active Substance: IVERMECTIN
     Indication: INFECTION PARASITIC

REACTIONS (3)
  - Product storage error [Recovered/Resolved]
  - Drug ineffective [Not Recovered/Not Resolved]
  - Product use in unapproved indication [Recovered/Resolved]

NARRATIVE: CASE EVENT DATE: 20190213
